FAERS Safety Report 23041101 (Version 2)
Quarter: 2023Q4

REPORT INFORMATION
  Report Type: Spontaneous
  Country: US (occurrence: US)
  Receive Date: 20231007
  Receipt Date: 20231211
  Transmission Date: 20240110
  Serious: Yes (Disabling)
  Sender: FDA-Public Use
  Company Number: US-SA-SAC20231006000578

PATIENT
  Age: 59 Year
  Sex: Male

DRUGS (3)
  1. DUPIXENT [Suspect]
     Active Substance: DUPILUMAB
     Indication: Dermatitis atopic
     Dosage: 600 MG, 1X
     Route: 058
     Dates: start: 20230809, end: 20230809
  2. DUPIXENT [Suspect]
     Active Substance: DUPILUMAB
     Dosage: 300 MG, QOW
     Route: 058
     Dates: start: 20230823
  3. LEXAPRO [Concomitant]
     Active Substance: ESCITALOPRAM OXALATE

REACTIONS (9)
  - Loss of personal independence in daily activities [Unknown]
  - Eczema [Unknown]
  - Pruritus [Unknown]
  - Affective disorder [Unknown]
  - Emotional disorder [Unknown]
  - Anxiety [Unknown]
  - Eyelid margin crusting [Unknown]
  - Pain of skin [Unknown]
  - Initial insomnia [Unknown]

NARRATIVE: CASE EVENT DATE: 20230101
